FAERS Safety Report 8925099 (Version 2)
Quarter: 2013Q1

REPORT INFORMATION
  Report Type: Spontaneous
  Country: US (occurrence: US)
  Receive Date: 20121126
  Receipt Date: 20130107
  Transmission Date: 20140127
  Serious: Yes (Other)
  Sender: FDA-Public Use
  Company Number: US-ASTELLAS-2012US011349

PATIENT
  Age: 80 Year
  Sex: Female

DRUGS (2)
  1. VESICARE [Suspect]
     Indication: HYPERTONIC BLADDER
     Dosage: 5 MG, QHS
     Route: 048
     Dates: start: 20121112, end: 20121115
  2. DIOVAN [Concomitant]
     Indication: HYPERTENSION
     Dosage: UNK
     Route: 065

REACTIONS (6)
  - Drug ineffective [Recovering/Resolving]
  - Dyspnoea [Unknown]
  - Swelling face [Recovered/Resolved]
  - Burning sensation [Recovering/Resolving]
  - Pain [Recovering/Resolving]
  - Nausea [Unknown]
